FAERS Safety Report 24694475 (Version 1)
Quarter: 2024Q4

REPORT INFORMATION
  Report Type: Spontaneous
  Country: FR (occurrence: FR)
  Receive Date: 20241204
  Receipt Date: 20241204
  Transmission Date: 20250115
  Serious: Yes (Hospitalization)
  Sender: JOHNSON AND JOHNSON
  Company Number: None

PATIENT
  Age: 72 Year
  Sex: Male
  Weight: 94 kg

DRUGS (4)
  1. TREMFYA [Suspect]
     Active Substance: GUSELKUMAB
     Indication: Psoriasis
     Route: 058
     Dates: start: 202011, end: 20241020
  2. TREMFYA [Suspect]
     Active Substance: GUSELKUMAB
  3. TREMFYA [Suspect]
     Active Substance: GUSELKUMAB
  4. BCG-MEDAC [Suspect]
     Active Substance: BACILLUS CALMETTE-GUERIN SUBSTRAIN RIVM LIVE ANTIGEN
     Indication: Transitional cell carcinoma
     Dosage: CF COMMENTAIRES
     Route: 043
     Dates: start: 20220401, end: 20241022

REACTIONS (7)
  - Product prescribing error [Recovered/Resolved]
  - Labelled drug-drug interaction medication error [Recovered/Resolved]
  - Contraindicated product administered [Recovered/Resolved]
  - Pyrexia [Recovered/Resolved]
  - Hepatic enzyme increased [Not Recovered/Not Resolved]
  - Disseminated tuberculosis [Not Recovered/Not Resolved]
  - Disseminated Bacillus Calmette-Guerin infection [Not Recovered/Not Resolved]

NARRATIVE: CASE EVENT DATE: 20220401
